FAERS Safety Report 11251475 (Version 1)
Quarter: 2015Q3

REPORT INFORMATION
  Report Type: Spontaneous
  Country: US (occurrence: US)
  Receive Date: 20150708
  Receipt Date: 20150708
  Transmission Date: 20151125
  Serious: No
  Sender: FDA-Public Use
  Company Number: US-ELI_LILLY_AND_COMPANY-US201203002711

PATIENT
  Age: 8 Year
  Sex: Male

DRUGS (5)
  1. PROZAC [Suspect]
     Active Substance: FLUOXETINE HYDROCHLORIDE
     Indication: AFFECTIVE DISORDER
     Dosage: 10 MG, QD
     Route: 065
     Dates: start: 201111, end: 20120229
  2. PROZAC [Suspect]
     Active Substance: FLUOXETINE HYDROCHLORIDE
     Dosage: 10 MG, QD
     Route: 065
     Dates: start: 20120302
  3. ATENEX [Concomitant]
     Dosage: UNK, UNKNOWN
     Route: 065
  4. ABILIFY [Concomitant]
     Active Substance: ARIPIPRAZOLE
     Dosage: UNK, UNKNOWN
     Route: 065
  5. DEXTROAMPHETAMINE. [Concomitant]
     Active Substance: DEXTROAMPHETAMINE SULFATE
     Dosage: UNK, UNKNOWN
     Route: 065

REACTIONS (6)
  - Impaired healing [Unknown]
  - Impulsive behaviour [Unknown]
  - Aggression [Unknown]
  - Drug dose omission [Recovered/Resolved]
  - Laceration [Unknown]
  - Off label use [Not Recovered/Not Resolved]

NARRATIVE: CASE EVENT DATE: 201111
